FAERS Safety Report 13649377 (Version 1)
Quarter: 2017Q2

REPORT INFORMATION
  Report Type: Spontaneous
  Country: IT (occurrence: IT)
  Receive Date: 20170613
  Receipt Date: 20170613
  Transmission Date: 20170830
  Serious: Yes (Other)
  Sender: FDA-Public Use
  Company Number: IT-MYLANLABS-2017M1034964

PATIENT

DRUGS (1)
  1. PIPERACILLINA E TAZOBACTAM MYLAN GENERICS [Suspect]
     Active Substance: PIPERACILLIN SODIUM\TAZOBACTAM SODIUM
     Indication: PNEUMONIA
     Dosage: 9 G, QD
     Route: 042
     Dates: start: 20170428, end: 20170511

REACTIONS (5)
  - Agitation [Recovered/Resolved]
  - Formication [Recovered/Resolved]
  - Injection site pain [Recovered/Resolved]
  - Malaise [Recovered/Resolved]
  - Pruritus generalised [Recovered/Resolved]

NARRATIVE: CASE EVENT DATE: 20170511
